FAERS Safety Report 25816175 (Version 2)
Quarter: 2025Q4

REPORT INFORMATION
  Report Type: Spontaneous
  Country: CA (occurrence: CA)
  Receive Date: 20250918
  Receipt Date: 20251110
  Transmission Date: 20260117
  Serious: Yes (Other)
  Sender: Kenvue
  Company Number: CA-KENVUE-20250903888

PATIENT

DRUGS (5)
  1. IBUPROFEN [Suspect]
     Active Substance: IBUPROFEN
     Indication: Pleuritic pain
     Dosage: UNK
     Route: 048
     Dates: start: 20250112, end: 20250124
  2. ADVIL [Suspect]
     Active Substance: IBUPROFEN
     Indication: Pleuritic pain
     Dosage: UNK
     Route: 048
     Dates: start: 20250112, end: 20250124
  3. NAPROXEN [Suspect]
     Active Substance: NAPROXEN
     Indication: Pleuritic pain
     Dosage: UNK
     Route: 048
     Dates: start: 20250112, end: 20250124
  4. BISOPROLOL [Concomitant]
     Active Substance: BISOPROLOL
     Indication: Product used for unknown indication
     Dosage: UNK
     Route: 065
     Dates: start: 20250201
  5. ACETAMINOPHEN\CODEINE PHOSPHATE [Concomitant]
     Active Substance: ACETAMINOPHEN\CODEINE PHOSPHATE
     Indication: Product used for unknown indication
     Route: 065

REACTIONS (10)
  - Presyncope [Unknown]
  - Blood lactic acid increased [Unknown]
  - Haemoglobin abnormal [Unknown]
  - Hypotension [Unknown]
  - Transfusion [Unknown]
  - Melaena [Unknown]
  - Gastrointestinal haemorrhage [Unknown]
  - Haemorrhage [Unknown]
  - Duodenal ulcer [Unknown]
  - Cerebrovascular accident [Unknown]

NARRATIVE: CASE EVENT DATE: 20150131
